APPROVED DRUG PRODUCT: LIDOCAINE
Active Ingredient: LIDOCAINE
Strength: 5%
Dosage Form/Route: PATCH;TOPICAL
Application: A207059 | Product #001 | TE Code: AB
Applicant: USPHARMA LTD
Approved: Feb 9, 2026 | RLD: No | RS: No | Type: RX